FAERS Safety Report 18285736 (Version 1)
Quarter: 2020Q3

REPORT INFORMATION
  Report Type: Report from Study
  Country: US (occurrence: US)
  Receive Date: 20200918
  Receipt Date: 20200918
  Transmission Date: 20201103
  Serious: Yes (Hospitalization, Other)
  Sender: FDA-Public Use
  Company Number: US-GILEAD-2020-0495722

PATIENT
  Age: 64 Year
  Sex: Male

DRUGS (1)
  1. EMTRICITABINE/RILPIVIRINE/TENOFOVIR ALAFENAMIDE [Suspect]
     Active Substance: EMTRICITABINE\RILPIVIRINE HYDROCHLORIDE\TENOFOVIR ALAFENAMIDE FUMARATE
     Indication: HIV INFECTION
     Dosage: 250 MG, QD
     Route: 048
     Dates: start: 201701

REACTIONS (2)
  - Liver transplant [Unknown]
  - Hepatitis A [Unknown]

NARRATIVE: CASE EVENT DATE: 20191025
